FAERS Safety Report 7811404-9 (Version None)
Quarter: 2011Q4

REPORT INFORMATION
  Report Type: 
  Country: None (occurrence: None)
  Receive Date: 20111013
  Receipt Date: 20111004
  Transmission Date: 20120403
  Serious: Yes (Other)
  Sender: FDA-Public Use
  Company Number: JP-SANOFI-AVENTIS-2011SA066240

PATIENT
  Sex: Female

DRUGS (4)
  1. ZOLPIDEM [Suspect]
     Route: 048
  2. ANAFRANIL [Suspect]
     Route: 065
  3. ALPRAZOLAM [Suspect]
     Route: 065
  4. DOGMATYL [Suspect]
     Route: 065

REACTIONS (1)
  - LOSS OF CONSCIOUSNESS [None]
